FAERS Safety Report 6119493-7 (Version None)
Quarter: 2009Q1

REPORT INFORMATION
  Report Type: 
  Country: None (occurrence: None)
  Receive Date: 20090316
  Receipt Date: 20090306
  Transmission Date: 20090719
  Serious: Yes (Hospitalization)
  Sender: FDA-Public Use
  Company Number: A0773173A

PATIENT
  Age: 54 Year
  Sex: Female
  Weight: 91.4 kg

DRUGS (5)
  1. AVANDIA [Suspect]
     Indication: DIABETES MELLITUS
     Dosage: 8MG PER DAY
     Route: 048
     Dates: start: 20041221, end: 20070101
  2. GLUCOTROL [Concomitant]
  3. ADVAIR HFA [Concomitant]
  4. TRAMADOL HCL [Concomitant]
  5. NEXIUM [Concomitant]

REACTIONS (2)
  - CARDIAC FAILURE CONGESTIVE [None]
  - CEREBROVASCULAR ACCIDENT [None]
